FAERS Safety Report 5400005-8 (Version None)
Quarter: 2007Q3

REPORT INFORMATION
  Report Type: 
  Country: None (occurrence: None)
  Receive Date: 20070725
  Receipt Date: 20070712
  Transmission Date: 20080115
  Serious: Yes (Hospitalization, Other)
  Sender: FDA-Public Use
  Company Number: EMR64300504-7

PATIENT
  Age: 57 Year
  Sex: Male

DRUGS (10)
  1. NIASPAN [Suspect]
     Dosage: 500 MG QD PO
     Route: 048
     Dates: start: 20070112, end: 20070215
  2. NIASPAN [Suspect]
     Dosage: 1000 MG QD PO
     Route: 048
     Dates: start: 20070216, end: 20070321
  3. MARCUMAR [Concomitant]
  4. ASPIRIN [Concomitant]
  5. METO ZEROK (METOPROLOL SUCCINATE) [Concomitant]
  6. INEGY (SIMVASTATIN, EZETIMIBE) [Concomitant]
  7. IRBESARTAN [Concomitant]
  8. AMIODARON (AMIODARONE) [Concomitant]
  9. NEXIUM [Concomitant]
  10. PLAVIX [Concomitant]

REACTIONS (4)
  - ATRIAL FIBRILLATION [None]
  - DUODENAL ULCER HAEMORRHAGE [None]
  - FOCAL NODULAR HYPERPLASIA [None]
  - HEPATOCELLULAR DAMAGE [None]
